FAERS Safety Report 6705349-5 (Version None)
Quarter: 2010Q2

REPORT INFORMATION
  Report Type: 
  Country: None (occurrence: None)
  Receive Date: 20100502
  Receipt Date: 20100426
  Transmission Date: 20101027
  Serious: Yes (Hospitalization)
  Sender: FDA-Public Use
  Company Number: US-BRISTOL-MYERS SQUIBB COMPANY-14003701

PATIENT
  Age: 79 Year
  Sex: Female
  Weight: 58 kg

DRUGS (1)
  1. DASATINIB [Suspect]
     Indication: HAEMANGIOPERICYTOMA
     Dosage: STARTED ON 11/OCT/2007
     Dates: start: 20071108, end: 20071101

REACTIONS (3)
  - ANAEMIA [None]
  - DYSPNOEA [None]
  - HYPOXIA [None]
